FAERS Safety Report 17554285 (Version 1)
Quarter: 2020Q1

REPORT INFORMATION
  Report Type: Spontaneous
  Country: FR (occurrence: FR)
  Receive Date: 20200318
  Receipt Date: 20200318
  Transmission Date: 20200409
  Serious: Yes (Hospitalization, Other)
  Sender: FDA-Public Use
  Company Number: FR-GLAXOSMITHKLINE-FR2020044053

PATIENT
  Age: 67 Year
  Sex: Male
  Weight: 46 kg

DRUGS (1)
  1. SCOPODERM TTS [Suspect]
     Active Substance: SCOPOLAMINE
     Indication: SALIVARY HYPERSECRETION
     Dosage: 1 DF
     Route: 003
     Dates: start: 20200214, end: 20200216

REACTIONS (1)
  - Anticholinergic syndrome [Not Recovered/Not Resolved]

NARRATIVE: CASE EVENT DATE: 20200216
